FAERS Safety Report 5946689-7 (Version None)
Quarter: 2008Q4

REPORT INFORMATION
  Report Type: 
  Country: None (occurrence: None)
  Receive Date: 20081110
  Receipt Date: 20080919
  Transmission Date: 20090506
  Serious: No
  Sender: FDA-Public Use
  Company Number: A0744461A

PATIENT
  Age: 2 Year
  Sex: Female
  Weight: 10.5 kg

DRUGS (2)
  1. ALTABAX [Suspect]
     Indication: IMPETIGO
  2. NYSTATIN [Concomitant]

REACTIONS (2)
  - BURNING SENSATION [None]
  - PRURITUS [None]
